FAERS Safety Report 13833489 (Version 11)
Quarter: 2018Q4

REPORT INFORMATION
  Report Type: Report from Study
  Country: CA (occurrence: CA)
  Receive Date: 20170804
  Receipt Date: 20181204
  Transmission Date: 20190204
  Serious: Yes (Other)
  Sender: FDA-Public Use
  Company Number: CA-BRISTOL-MYERS SQUIBB COMPANY-BMS-2017-039814

PATIENT
  Age: 70 Year
  Sex: Female

DRUGS (2)
  1. ABATACEPT [Suspect]
     Active Substance: ABATACEPT
     Indication: PRODUCT USED FOR UNKNOWN INDICATION
     Dosage: 500 MG, Q4WK
     Route: 042
  2. ABATACEPT [Suspect]
     Active Substance: ABATACEPT
     Indication: RHEUMATOID ARTHRITIS
     Dosage: 750 MG, Q4WK
     Route: 042
     Dates: start: 20160916

REACTIONS (19)
  - Arthralgia [Unknown]
  - Cardiac disorder [Unknown]
  - Pneumonia [Recovering/Resolving]
  - Rib fracture [Unknown]
  - Device malfunction [Unknown]
  - Weight decreased [Not Recovered/Not Resolved]
  - Hypertension [Unknown]
  - Gastrointestinal disorder [Unknown]
  - Eye disorder [Unknown]
  - Nasopharyngitis [Recovering/Resolving]
  - Vomiting [Unknown]
  - Drug interaction [Unknown]
  - Pain in extremity [Unknown]
  - Musculoskeletal pain [Unknown]
  - Haemoglobin decreased [Unknown]
  - Poor venous access [Recovered/Resolved]
  - Tooth fracture [Unknown]
  - Hypotension [Recovered/Resolved]
  - Fall [Recovered/Resolved]

NARRATIVE: CASE EVENT DATE: 20170726
